FAERS Safety Report 5511271-2 (Version None)
Quarter: 2007Q4

REPORT INFORMATION
  Report Type: 
  Country: None (occurrence: None)
  Receive Date: 20071107
  Receipt Date: 20071026
  Transmission Date: 20080405
  Serious: Yes (Other)
  Sender: FDA-Public Use
  Company Number: 2007JP004941

PATIENT
  Age: 85 Year
  Sex: Male

DRUGS (8)
  1. VESICARE [Suspect]
     Indication: HYPERTONIC BLADDER
     Dosage: 5 MG, /D, ORAL
     Route: 048
     Dates: start: 20070928, end: 20071024
  2. TAMSULOSIN HCL [Suspect]
     Indication: BENIGN PROSTATIC HYPERPLASIA
     Dosage: 0.2 MG, /D, ORAL
     Route: 048
  3. ARTIST (CARVEDILOL) PER ORAL NOS [Concomitant]
  4. LASIX (FUROSEMIDE) PER ORAL NOS [Concomitant]
  5. ALDACTONE PER ORAL NOS [Concomitant]
  6. RENIVACE (ENALAPRIL MALEATE) PER ORAL NOS [Concomitant]
  7. ANCARON (AMIODARONE HYDROCHLORIDE) PER ORAL NOS [Concomitant]
  8. LOCOL PER ORAL NOS [Concomitant]

REACTIONS (1)
  - BLOOD UREA INCREASED [None]
